FAERS Safety Report 4909341-2 (Version None)
Quarter: 2006Q1

REPORT INFORMATION
  Report Type: 
  Country: None (occurrence: None)
  Receive Date: 20060213
  Receipt Date: 20060208
  Transmission Date: 20060701
  Serious: Yes (Other)
  Sender: FDA-Public Use
  Company Number: S2006US01829

PATIENT
  Sex: Female

DRUGS (2)
  1. VALTREX [Suspect]
     Indication: DRUG USE FOR UNKNOWN INDICATION
     Route: 048
  2. FLEXERIL [Suspect]

REACTIONS (11)
  - ARTHRITIS [None]
  - BLINDNESS [None]
  - BLOOD IMMUNOGLOBULIN A DECREASED [None]
  - CEREBRAL ISCHAEMIA [None]
  - GLOSSODYNIA [None]
  - HEADACHE [None]
  - HERPES VIRUS INFECTION [None]
  - NASOPHARYNGITIS [None]
  - PAPILLOEDEMA [None]
  - PETECHIAE [None]
  - VASCULITIS CEREBRAL [None]
